FAERS Safety Report 23240663 (Version 2)
Quarter: 2023Q4

REPORT INFORMATION
  Report Type: Report from Study
  Country: US (occurrence: US)
  Receive Date: 20231129
  Receipt Date: 20231218
  Transmission Date: 20240110
  Serious: Yes (Other)
  Sender: FDA-Public Use
  Company Number: US-002147023-NVSC2023US250659

PATIENT
  Sex: Female

DRUGS (2)
  1. GLEEVEC [Suspect]
     Active Substance: IMATINIB MESYLATE
     Indication: Chronic myeloid leukaemia
     Dosage: UNK
     Route: 065
  2. TASIGNA [Suspect]
     Active Substance: NILOTINIB
     Indication: Chronic myeloid leukaemia
     Dosage: UNK (14 DAYS TRIAL)
     Route: 065

REACTIONS (7)
  - Haematochezia [Unknown]
  - Abdominal discomfort [Unknown]
  - Product distribution issue [Unknown]
  - Haemorrhage [Unknown]
  - Bronchitis [Unknown]
  - Cough [Unknown]
  - Product dose omission issue [Unknown]
